FAERS Safety Report 25962969 (Version 2)
Quarter: 2025Q4

REPORT INFORMATION
  Report Type: Report from Study
  Country: JP (occurrence: JP)
  Receive Date: 20251027
  Receipt Date: 20251028
  Transmission Date: 20260117
  Serious: Yes (Death)
  Sender: PFIZER
  Company Number: JP-PFIZER INC-202500210800

PATIENT
  Age: 79 Year
  Sex: Female

DRUGS (3)
  1. ELRANATAMAB [Suspect]
     Active Substance: ELRANATAMAB
     Indication: Plasma cell myeloma refractory
     Dosage: 12 MG PER DAY
     Route: 058
     Dates: start: 20240708
  2. ELRANATAMAB [Suspect]
     Active Substance: ELRANATAMAB
     Dosage: 32 MG PER DAY
     Route: 058
     Dates: start: 2024
  3. ELRANATAMAB [Suspect]
     Active Substance: ELRANATAMAB
     Dosage: 76 MG PER DAY
     Route: 058
     Dates: start: 2024

REACTIONS (3)
  - Pneumonia [Fatal]
  - Escherichia sepsis [Fatal]
  - Pyrexia [Recovered/Resolved]

NARRATIVE: CASE EVENT DATE: 20240901
